FAERS Safety Report 18205636 (Version 2)
Quarter: 2020Q3

REPORT INFORMATION
  Report Type: Spontaneous
  Country: HR (occurrence: HR)
  Receive Date: 20200828
  Receipt Date: 20200916
  Transmission Date: 20201103
  Serious: Yes (Life-Threatening, Hospitalization, Other)
  Sender: FDA-Public Use
  Company Number: HR-ACCORD-197586

PATIENT
  Age: 7 Year
  Sex: Female
  Weight: 30 kg

DRUGS (6)
  1. VINCRISTINE [Suspect]
     Active Substance: VINCRISTINE
     Indication: ACUTE LYMPHOCYTIC LEUKAEMIA
     Dosage: 1.5 MG/ SQ.M/D
     Route: 040
  2. METHOTREXATE. [Suspect]
     Active Substance: METHOTREXATE
     Indication: ACUTE LYMPHOCYTIC LEUKAEMIA
     Route: 037
  3. PREDNISONE. [Suspect]
     Active Substance: PREDNISONE
     Indication: ACUTE LYMPHOCYTIC LEUKAEMIA
     Dosage: TAPERING
     Route: 048
  4. DAUNORUBICIN [Suspect]
     Active Substance: DAUNORUBICIN
     Indication: ACUTE LYMPHOCYTIC LEUKAEMIA
     Dosage: 30 MG/SQ. M/D
     Route: 042
  5. PREDNISONE. [Suspect]
     Active Substance: PREDNISONE
     Indication: ACUTE LYMPHOCYTIC LEUKAEMIA
     Dosage: 60 MG/M2/D, 1?28 DAY
     Route: 048
  6. ASPARAGINASE [Suspect]
     Active Substance: ASPARAGINASE
     Indication: ACUTE LYMPHOCYTIC LEUKAEMIA
     Dosage: 5000 IU/ SQ.M/D

REACTIONS (15)
  - Ileus paralytic [Recovered/Resolved]
  - Sepsis [Recovered/Resolved]
  - Cerebral artery thrombosis [Recovered/Resolved]
  - Hyponatraemia [Recovered/Resolved]
  - Asthenia [Recovered/Resolved]
  - Epilepsy [Recovered/Resolved]
  - Tremor [Recovered/Resolved]
  - Dysarthria [Recovered/Resolved]
  - Febrile neutropenia [Recovered/Resolved]
  - Hemiparesis [Recovered/Resolved]
  - Cerebral atrophy [Recovered/Resolved]
  - Cerebral ischaemia [Recovered/Resolved]
  - Hypertension [Recovered/Resolved]
  - Hypotonia [Recovered/Resolved]
  - Nystagmus [Recovered/Resolved]
